FAERS Safety Report 7935385-2 (Version None)
Quarter: 2011Q4

REPORT INFORMATION
  Report Type: 
  Country: None (occurrence: None)
  Receive Date: 20111122
  Receipt Date: 20111115
  Transmission Date: 20120403
  Serious: Yes (Hospitalization, Other)
  Sender: FDA-Public Use
  Company Number: MW-ABBOTT-11P-100-0874503-00

PATIENT
  Sex: Female
  Weight: 1.6 kg

DRUGS (2)
  1. LOPINAVIR/RITONAVIR [Suspect]
     Indication: EXPOSURE DURING BREAST FEEDING
     Route: 063
  2. LOPINAVIR/RITONAVIR [Suspect]
     Indication: MATERNAL EXPOSURE TIMING UNSPECIFIED
     Route: 064

REACTIONS (1)
  - PREMATURE BABY [None]
